FAERS Safety Report 10662989 (Version 5)
Quarter: 2015Q2

REPORT INFORMATION
  Report Type: Spontaneous
  Country: JP (occurrence: JP)
  Receive Date: 20141218
  Receipt Date: 20150616
  Transmission Date: 20150821
  Serious: Yes (Hospitalization)
  Sender: FDA-Public Use
  Company Number: JP-ABBVIE-14P-087-1323349-00

PATIENT
  Age: 32 Year
  Sex: Male

DRUGS (7)
  1. CLARITH [Suspect]
     Active Substance: CLARITHROMYCIN
     Indication: HELICOBACTER INFECTION
     Route: 048
     Dates: start: 20140301, end: 20140308
  2. TAKEPRON [Suspect]
     Active Substance: LANSOPRAZOLE
     Indication: HELICOBACTER INFECTION
     Route: 048
     Dates: start: 20140215, end: 20140228
  3. TAKEPRON [Suspect]
     Active Substance: LANSOPRAZOLE
     Route: 048
     Dates: start: 20140301, end: 20140308
  4. MUCOSTA [Suspect]
     Active Substance: REBAMIPIDE
     Route: 048
     Dates: start: 20140309, end: 20140319
  5. TAKEPRON [Suspect]
     Active Substance: LANSOPRAZOLE
     Route: 048
     Dates: start: 20140309, end: 20140319
  6. MUCOSTA [Suspect]
     Active Substance: REBAMIPIDE
     Indication: CHRONIC GASTRITIS
     Route: 048
     Dates: start: 20140215, end: 20140301
  7. AMOLIN [Suspect]
     Active Substance: AMOXICILLIN
     Indication: HELICOBACTER INFECTION
     Route: 048
     Dates: start: 20140301, end: 20140308

REACTIONS (1)
  - Erythema multiforme [Recovered/Resolved]

NARRATIVE: CASE EVENT DATE: 20140314
